FAERS Safety Report 14848545 (Version 1)
Quarter: 2018Q2

REPORT INFORMATION
  Report Type: Report from Study
  Country: IE (occurrence: IE)
  Receive Date: 20180504
  Receipt Date: 20180504
  Transmission Date: 20180711
  Serious: Yes (Hospitalization)
  Sender: FDA-Public Use
  Company Number: IE-TEVA-2018-IE-889383

PATIENT
  Sex: Female

DRUGS (1)
  1. COPAXONE [Suspect]
     Active Substance: GLATIRAMER ACETATE
     Indication: MULTIPLE SCLEROSIS
     Dosage: COPAXONE 40MG/ML
     Route: 058

REACTIONS (2)
  - Dehydration [Recovered/Resolved]
  - Diarrhoea [Recovered/Resolved]
